FAERS Safety Report 7498780-4 (Version None)
Quarter: 2011Q2

REPORT INFORMATION
  Report Type: 
  Country: None (occurrence: None)
  Receive Date: 20110524
  Receipt Date: 20110521
  Transmission Date: 20111010
  Serious: No
  Sender: FDA-Public Use
  Company Number: US-PFIZER INC-2011110046

PATIENT
  Sex: Female
  Weight: 138.32 kg

DRUGS (6)
  1. BENICAR [Concomitant]
     Indication: HYPERTENSION
     Dosage: 40 MG, UNK
  2. KLOR-CON [Concomitant]
     Dosage: UNK
  3. PLAVIX [Concomitant]
     Dosage: UNK
  4. CARDIZEM CD [Concomitant]
     Indication: CARDIAC DISORDER
     Dosage: 360 MG, UNK
  5. LIPITOR [Suspect]
     Indication: BLOOD CHOLESTEROL INCREASED
     Dosage: 10 MG, DAILY
     Route: 048
     Dates: start: 20110510, end: 20110521
  6. DINOPROSTONE [Concomitant]
     Dosage: UNK

REACTIONS (1)
  - MYALGIA [None]
